FAERS Safety Report 15455529 (Version 1)
Quarter: 2018Q4

REPORT INFORMATION
  Report Type: Spontaneous
  Country: US (occurrence: US)
  Receive Date: 20181002
  Receipt Date: 20181002
  Transmission Date: 20190204
  Serious: Yes (Hospitalization, Other)
  Sender: FDA-Public Use
  Company Number: US-GLAXOSMITHKLINE-US2018174519

PATIENT
  Age: 54 Year
  Sex: Male

DRUGS (2)
  1. ANORO ELLIPTA [Suspect]
     Active Substance: UMECLIDINIUM BROMIDE\VILANTEROL TRIFENATATE
     Indication: EMPHYSEMA
  2. ANORO ELLIPTA [Suspect]
     Active Substance: UMECLIDINIUM BROMIDE\VILANTEROL TRIFENATATE
     Indication: CHRONIC OBSTRUCTIVE PULMONARY DISEASE
     Dosage: 1 PUFF(S), 1D
     Route: 055
     Dates: start: 2016

REACTIONS (8)
  - Cardiac ablation [Unknown]
  - Procedural shock [Unknown]
  - Cardiac disorder [Unknown]
  - Oxygen saturation decreased [Not Recovered/Not Resolved]
  - Respiratory tract congestion [Unknown]
  - Heart rate increased [Recovered/Resolved]
  - Intensive care [Unknown]
  - Lung disorder [Unknown]

NARRATIVE: CASE EVENT DATE: 201707
